FAERS Safety Report 10131104 (Version 1)
Quarter: 2014Q2

REPORT INFORMATION
  Report Type: Spontaneous
  Country: US (occurrence: US)
  Receive Date: 20140428
  Receipt Date: 20140428
  Transmission Date: 20141212
  Serious: No
  Sender: FDA-Public Use
  Company Number: US-BAYER-2014-062164

PATIENT
  Age: 74 Year
  Sex: Female
  Weight: 63.49 kg

DRUGS (6)
  1. ALEVE TABLET [Suspect]
     Indication: ARTHRITIS
     Dosage: 1 DF, PRN
     Route: 048
  2. ZANTAC [Concomitant]
  3. LIBRIUM [Concomitant]
  4. VITAMIN D [Concomitant]
  5. VITAMIN B12 [CYANOCOBALAMIN] [Concomitant]
  6. VITAMIN E [Concomitant]

REACTIONS (1)
  - Dyspepsia [Recovered/Resolved]
